FAERS Safety Report 9121338 (Version 1)
Quarter: 2013Q1

REPORT INFORMATION
  Report Type: Spontaneous
  Country: FR (occurrence: FR)
  Receive Date: 20130225
  Receipt Date: 20130225
  Transmission Date: 20140127
  Serious: Yes (Hospitalization)
  Sender: FDA-Public Use
  Company Number: FR-BRISTOL-MYERS SQUIBB COMPANY-17391343

PATIENT
  Age: 53 Year
  Sex: Female

DRUGS (8)
  1. COUMADIN [Suspect]
     Dosage: LAST DOSE-19JAN2013?DOSE INCREASED-9.5 MG,3/D
     Route: 048
     Dates: start: 20121227
  2. STRESAM [Suspect]
     Indication: ANXIETY
     Dosage: LAST DOSE- 19JAN2013
     Route: 048
     Dates: start: 20121227, end: 20130119
  3. OESTRODOSE [Concomitant]
  4. CALPEROS [Concomitant]
  5. TAHOR [Concomitant]
  6. DAFALGAN CODEINE [Concomitant]
  7. COVERSYL [Concomitant]
  8. UVEDOSE [Concomitant]

REACTIONS (3)
  - International normalised ratio decreased [Recovering/Resolving]
  - Hepatitis [Recovering/Resolving]
  - Renal impairment [Recovering/Resolving]
